FAERS Safety Report 25206936 (Version 2)
Quarter: 2025Q2

REPORT INFORMATION
  Report Type: Report from Study
  Country: DE (occurrence: DE)
  Receive Date: 20250417
  Receipt Date: 20250603
  Transmission Date: 20250717
  Serious: Yes (Other)
  Sender: EMD SERONO INC
  Company Number: DE-Merck Healthcare KGaA-2025017450

PATIENT
  Age: 33 Year
  Sex: Female

DRUGS (9)
  1. REBIF [Suspect]
     Active Substance: INTERFERON BETA-1A
     Indication: Multiple sclerosis
     Dates: start: 2016, end: 20220906
  2. REBIF [Suspect]
     Active Substance: INTERFERON BETA-1A
  3. CHORIOGONADOTROPIN ALFA [Concomitant]
     Active Substance: CHORIOGONADOTROPIN ALFA
     Indication: Ovulation induction
     Dates: start: 20220822, end: 20220822
  4. CHORIOGONADOTROPIN ALFA [Concomitant]
     Active Substance: CHORIOGONADOTROPIN ALFA
     Indication: Infertility
  5. FOLLITROPIN BETA [Concomitant]
     Active Substance: FOLLITROPIN BETA
     Indication: Blood follicle stimulating hormone abnormal
     Dates: start: 20220808, end: 20220821
  6. FOLLITROPIN BETA [Concomitant]
     Active Substance: FOLLITROPIN BETA
     Indication: Infertility
  7. PROGESTERONE [Concomitant]
     Active Substance: PROGESTERONE
     Indication: Prophylaxis
  8. PROGESTERONE [Concomitant]
     Active Substance: PROGESTERONE
     Indication: Infertility
  9. RUBELLA VIRUS VACCINE LIVE NOS [Concomitant]
     Active Substance: RUBELLA VIRUS STRAIN WISTAR RA 27/3 LIVE ANTIGEN
     Indication: Immunisation

REACTIONS (4)
  - Premature rupture of membranes [Recovered/Resolved]
  - Premature delivery [Recovered/Resolved]
  - Live birth [Recovered/Resolved]
  - Maternal exposure during pregnancy [Recovered/Resolved]

NARRATIVE: CASE EVENT DATE: 20230416
